FAERS Safety Report 5669819-3 (Version None)
Quarter: 2008Q1

REPORT INFORMATION
  Report Type: 
  Country: None (occurrence: None)
  Receive Date: 20080317
  Receipt Date: 20080306
  Transmission Date: 20080703
  Serious: Yes (Other)
  Sender: FDA-Public Use
  Company Number: PFIZER INC-2008022783

PATIENT

DRUGS (1)
  1. SERTRALINE [Suspect]
     Route: 048

REACTIONS (3)
  - ANXIETY [None]
  - GASTROINTESTINAL DISORDER [None]
  - IRRITABILITY [None]
